FAERS Safety Report 9949098 (Version 1)
Quarter: 2014Q1

REPORT INFORMATION
  Report Type: Spontaneous
  Country: US (occurrence: US)
  Receive Date: 20140304
  Receipt Date: 20140304
  Transmission Date: 20141002
  Serious: Yes (Hospitalization, Other)
  Sender: FDA-Public Use
  Company Number: US-AMGEN-USASP2014014813

PATIENT
  Age: 61 Year
  Sex: Female

DRUGS (2)
  1. ENBREL [Suspect]
     Indication: ANKYLOSING SPONDYLITIS
     Dosage: UNK UNK, QWK
     Route: 065
     Dates: start: 2004
  2. ENBREL [Suspect]
     Indication: RHEUMATOID ARTHRITIS

REACTIONS (14)
  - Respiratory failure [Recovered/Resolved]
  - Disseminated intravascular coagulation [Recovered/Resolved]
  - Feeding tube complication [Recovered/Resolved]
  - Arthropathy [Recovered/Resolved]
  - Cataract [Recovered/Resolved]
  - Breath sounds abnormal [Not Recovered/Not Resolved]
  - Decreased immune responsiveness [Not Recovered/Not Resolved]
  - Weight decreased [Recovered/Resolved]
  - Staphylococcal infection [Recovered/Resolved]
  - Urinary tract infection [Recovered/Resolved]
  - Herpes zoster [Recovered/Resolved]
  - Muscle atrophy [Recovered/Resolved]
  - Mobility decreased [Recovered/Resolved]
  - Hypertonic bladder [Not Recovered/Not Resolved]
